FAERS Safety Report 8257411-6 (Version None)
Quarter: 2012Q1

REPORT INFORMATION
  Report Type: 
  Country: None (occurrence: None)
  Receive Date: 20120330
  Receipt Date: 20120330
  Transmission Date: 20120608
  Serious: Yes (Other)
  Sender: FDA-Public Use
  Company Number: None

PATIENT
  Age: 73 Year
  Sex: Female
  Weight: 81.6475 kg

DRUGS (1)
  1. SAVELLA [Suspect]
     Dosage: 12.5 MG 1 PER DAY 2 DAYS; 12.5MG 2 PER DAY 1 DAY

REACTIONS (5)
  - MALAISE [None]
  - DIARRHOEA [None]
  - HEADACHE [None]
  - PALPITATIONS [None]
  - HEART RATE INCREASED [None]
